FAERS Safety Report 14768477 (Version 1)
Quarter: 2018Q2

REPORT INFORMATION
  Report Type: Spontaneous
  Country: US (occurrence: US)
  Receive Date: 20180417
  Receipt Date: 20180417
  Transmission Date: 20180711
  Serious: No
  Sender: FDA-Public Use
  Company Number: US-BAYER-2018-072712

PATIENT
  Age: 39 Year
  Sex: Female

DRUGS (1)
  1. GADAVIST [Suspect]
     Active Substance: GADOBUTROL
     Dosage: UNK, ONCE
     Route: 042
     Dates: start: 20180328, end: 20180328

REACTIONS (2)
  - Pruritus [None]
  - Pruritus generalised [None]

NARRATIVE: CASE EVENT DATE: 20180328
